FAERS Safety Report 17815496 (Version 1)
Quarter: 2020Q2

REPORT INFORMATION
  Report Type: Spontaneous
  Country: US (occurrence: US)
  Receive Date: 20200521
  Receipt Date: 20200521
  Transmission Date: 20200714
  Serious: No
  Sender: FDA-Public Use
  Company Number: None

PATIENT
  Age: 77 Year
  Sex: Female
  Weight: 54.18 kg

DRUGS (9)
  1. EXCEDRIN [Concomitant]
     Active Substance: ACETAMINOPHEN\ASPIRIN\CAFFEINE
  2. FULVESTRANT. [Concomitant]
     Active Substance: FULVESTRANT
  3. IBRANCE [Suspect]
     Active Substance: PALBOCICLIB
     Indication: BREAST CANCER FEMALE
     Route: 048
     Dates: start: 20200501, end: 20200501
  4. PROLIA [Concomitant]
     Active Substance: DENOSUMAB
  5. VITAMIN D [Concomitant]
     Active Substance: VITAMIN D NOS
  6. XGEVA [Concomitant]
     Active Substance: DENOSUMAB
  7. FLONASE [Concomitant]
     Active Substance: FLUTICASONE PROPIONATE
  8. DIAZEPAM 10MG [Concomitant]
     Active Substance: DIAZEPAM
  9. ESCITALOPRAM 10MG [Concomitant]
     Active Substance: ESCITALOPRAM OXALATE

REACTIONS (5)
  - Bedridden [None]
  - Feeding disorder [None]
  - Hypersomnia [None]
  - Asthenia [None]
  - Therapy cessation [None]

NARRATIVE: CASE EVENT DATE: 20200521
